FAERS Safety Report 4875067-7 (Version None)
Quarter: 2006Q1

REPORT INFORMATION
  Report Type: 
  Country: None (occurrence: None)
  Receive Date: 20060104
  Receipt Date: 20051220
  Transmission Date: 20060701
  Serious: Yes (Hospitalization)
  Sender: FDA-Public Use
  Company Number: 2005173144

PATIENT
  Age: 74 Year
  Sex: Female

DRUGS (3)
  1. METHYLPREDNISOLONE [Suspect]
     Indication: ILL-DEFINED DISORDER
     Dosage: 60 MG (DAILY) INTRAVENOUS
     Route: 042
     Dates: start: 20051115, end: 20051120
  2. PREDNISOLONE [Suspect]
     Indication: ILL-DEFINED DISORDER
     Dosage: 60 MG (20 MG DAILY) ORAL
     Route: 048
     Dates: end: 20051122
  3. PREDNISONE [Suspect]
     Indication: ILL-DEFINED DISORDER
     Dosage: 60 MG (20 MG DAILY) ORAL
     Route: 048
     Dates: start: 20051113, end: 20051113

REACTIONS (4)
  - ANAEMIA [None]
  - LEUKOCYTOSIS [None]
  - LYMPHOCYTOSIS [None]
  - THROMBOCYTOPENIA [None]
